FAERS Safety Report 6618966-8 (Version None)
Quarter: 2010Q1

REPORT INFORMATION
  Report Type: 
  Country: None (occurrence: None)
  Receive Date: 20100308
  Receipt Date: 20100222
  Transmission Date: 20100710
  Serious: Yes (Hospitalization)
  Sender: FDA-Public Use
  Company Number: PHHY2010US11996

PATIENT
  Sex: Female

DRUGS (1)
  1. RECLAST [Suspect]
     Dosage: UNK
     Route: 042
     Dates: start: 20080101, end: 20091231

REACTIONS (6)
  - BACK PAIN [None]
  - JAW DISORDER [None]
  - LUMBAR VERTEBRAL FRACTURE [None]
  - MASS EXCISION [None]
  - SURGERY [None]
  - TOOTH EXTRACTION [None]
